FAERS Safety Report 5061031-4 (Version None)
Quarter: 2006Q3

REPORT INFORMATION
  Report Type: 
  Country: None (occurrence: None)
  Receive Date: 20060719
  Receipt Date: 20060719
  Transmission Date: 20061208
  Serious: Yes (Hospitalization)
  Sender: FDA-Public Use
  Company Number: None

PATIENT
  Sex: Male

DRUGS (23)
  1. IMIPENEM-CILISTATIN  500 MG [Suspect]
     Indication: OSTEOMYELITIS
     Dosage: 500 MG Q 8 HR IV
     Route: 042
     Dates: start: 20060420, end: 20060423
  2. AMPICILLIN [Concomitant]
  3. VANCOMYCIN [Concomitant]
  4. MORPHINE [Concomitant]
  5. FENTANYL [Concomitant]
  6. ALBUTEROL SPIROS [Concomitant]
  7. COMBIVENT [Concomitant]
  8. APAP TAB [Concomitant]
  9. CYCLOBENZAPRINE HCL [Concomitant]
  10. FINASTERIDE [Concomitant]
  11. FLUNISOLIDE ORAL INHALER [Concomitant]
  12. FORMOTEROL [Concomitant]
  13. HEPARIN [Concomitant]
  14. HYDROCHLOROTHIAZIDE [Concomitant]
  15. HYDROMORPHONE HCL [Concomitant]
  16. IPRATROPIUM BROMIDE [Concomitant]
  17. LACTULOSE [Concomitant]
  18. LIDOCAINE [Concomitant]
  19. MULTIVITAMINS/MINERALS [Concomitant]
  20. OMEPRAZOLE [Concomitant]
  21. SENNA [Concomitant]
  22. TERAZOSIN HCL [Concomitant]
  23. TRAMADOL [Concomitant]

REACTIONS (1)
  - MYOCLONUS [None]
